FAERS Safety Report 5028406-0 (Version None)
Quarter: 2006Q2

REPORT INFORMATION
  Report Type: 
  Country: None (occurrence: None)
  Receive Date: 20060617
  Receipt Date: 20060606
  Transmission Date: 20061013
  Serious: Yes (Hospitalization, Other)
  Sender: FDA-Public Use
  Company Number: US-JNJFOC-20051104568

PATIENT
  Sex: Male
  Weight: 92 kg

DRUGS (11)
  1. RISPERDAL [Suspect]
     Dosage: 2 MG TABLET (ONE-HALF TABLET TWICE DAILY)
     Route: 048
  2. RISPERDAL [Suspect]
     Route: 048
  3. RISPERDAL [Suspect]
     Route: 048
  4. RISPERDAL [Suspect]
     Route: 048
  5. RISPERDAL [Suspect]
     Route: 048
  6. RISPERDAL [Suspect]
     Indication: BIPOLAR DISORDER
     Route: 048
  7. LITHIUM CARBONATE [Concomitant]
  8. TEGRETOL [Concomitant]
  9. ANSAID [Concomitant]
  10. KLONOPIN [Concomitant]
  11. PREVACID [Concomitant]

REACTIONS (16)
  - ATRIAL FIBRILLATION [None]
  - BLOOD TRIGLYCERIDES INCREASED [None]
  - CHEST PAIN [None]
  - COLON ADENOMA [None]
  - CORONARY ARTERY DISEASE [None]
  - DIABETES MELLITUS [None]
  - DYSGEUSIA [None]
  - HELICOBACTER INFECTION [None]
  - HYPERGLYCAEMIA [None]
  - INTESTINAL POLYP [None]
  - OPISTHOTONUS [None]
  - PAROSMIA [None]
  - SPINAL COLUMN STENOSIS [None]
  - TARDIVE DYSKINESIA [None]
  - VISION BLURRED [None]
  - WEIGHT INCREASED [None]
